FAERS Safety Report 15399212 (Version 1)
Quarter: 2018Q3

REPORT INFORMATION
  Report Type: Spontaneous
  Country: US (occurrence: US)
  Receive Date: 20180918
  Receipt Date: 20180918
  Transmission Date: 20181010
  Serious: Yes (Other)
  Sender: FDA-Public Use
  Company Number: US-PRESTIGE BRANDS -2055083

PATIENT
  Sex: Female

DRUGS (2)
  1. GOODYS BACK AND BODY PAIN [Suspect]
     Active Substance: ACETAMINOPHEN\ASPIRIN
     Route: 048
  2. GOODYS EXTRA STRENGTH [Suspect]
     Active Substance: ACETAMINOPHEN\ASPIRIN\CAFFEINE
     Route: 048

REACTIONS (2)
  - Incorrect drug administration duration [Unknown]
  - Drug dependence [Unknown]
